FAERS Safety Report 15391130 (Version 1)
Quarter: 2018Q3

REPORT INFORMATION
  Report Type: Spontaneous
  Country: PL (occurrence: PL)
  Receive Date: 20180917
  Receipt Date: 20180917
  Transmission Date: 20181010
  Serious: Yes (Hospitalization)
  Sender: FDA-Public Use
  Company Number: PL-TEVA-2018-PL-954186

PATIENT
  Age: 29 Year
  Sex: Male

DRUGS (1)
  1. IMATINIB [Suspect]
     Active Substance: IMATINIB
     Indication: CHRONIC EOSINOPHILIC LEUKAEMIA
     Route: 065

REACTIONS (4)
  - Cardiomegaly [Recovering/Resolving]
  - Cardiac failure congestive [Recovering/Resolving]
  - Right ventricular hypertrophy [Recovering/Resolving]
  - Condition aggravated [Recovering/Resolving]
